FAERS Safety Report 8518613 (Version 3)
Quarter: 2012Q4

REPORT INFORMATION
  Report Type: 
  Country: US (occurrence: US)
  Receive Date: 20120417
  Receipt Date: 20121120
  Transmission Date: 20130627
  Serious: No
  Sender: FDA-Public Use
  Company Number: US-ASTRAZENECA-2011SE14764

PATIENT
  Age: 65 Year
  Sex: Female

DRUGS (2)
  1. NEXIUM [Suspect]
     Route: 048
  2. SYMBICORT PMDI [Suspect]
     Dosage: 160/4.5 MCG UNKNOWN
     Route: 055

REACTIONS (5)
  - Throat tightness [Unknown]
  - Gastrooesophageal reflux disease [Unknown]
  - Pharyngeal oedema [Unknown]
  - Oral mucosal blistering [Unknown]
  - Drug dose omission [Unknown]
